FAERS Safety Report 14833150 (Version 1)
Quarter: 2018Q2

REPORT INFORMATION
  Report Type: Spontaneous
  Country: US (occurrence: US)
  Receive Date: 20180414
  Receipt Date: 20180414
  Transmission Date: 20180711
  Serious: Yes (Death, Life-Threatening, Hospitalization, Disabling, Other)
  Sender: FDA-Public Use
  Company Number: None

PATIENT
  Age: 77 Year
  Sex: Female
  Weight: 53.55 kg

DRUGS (12)
  1. IRON [Concomitant]
     Active Substance: IRON
  2. ASPIRIN. [Concomitant]
     Active Substance: ASPIRIN
  3. AMIODARONE [Suspect]
     Active Substance: AMIODARONE
     Indication: ATRIAL FIBRILLATION
     Dosage: ?          QUANTITY:90 TABLET(S);?
     Route: 048
     Dates: start: 20171109, end: 20180225
  4. ATENOLOL. [Concomitant]
     Active Substance: ATENOLOL
  5. PROMETHAZINE-CODEINE [Concomitant]
     Active Substance: CODEINE PHOSPHATE\PROMETHAZINE
  6. GLIPIZIDE. [Concomitant]
     Active Substance: GLIPIZIDE
  7. FUROSEMIDE. [Concomitant]
     Active Substance: FUROSEMIDE
  8. TEMAZEPAM. [Concomitant]
     Active Substance: TEMAZEPAM
  9. PACEMAKER [Concomitant]
  10. HYDROCODONE-ACETAMINOPHEN [Concomitant]
     Active Substance: ACETAMINOPHEN\HYDROCODONE
  11. POTASSIUM CHLORIDE. [Concomitant]
     Active Substance: POTASSIUM CHLORIDE
  12. LOVASTATIN. [Concomitant]
     Active Substance: LOVASTATIN

REACTIONS (14)
  - Myalgia [None]
  - Liver disorder [None]
  - Haemolytic anaemia [None]
  - Rhabdomyolysis [None]
  - Thrombosis [None]
  - Cardiac disorder [None]
  - Fatigue [None]
  - Intracardiac thrombus [None]
  - Product use in unapproved indication [None]
  - Dyspnoea [None]
  - Renal disorder [None]
  - Gait inability [None]
  - Pulmonary toxicity [None]
  - Cholecystitis [None]

NARRATIVE: CASE EVENT DATE: 20180222
